FAERS Safety Report 20564046 (Version 4)
Quarter: 2022Q4

REPORT INFORMATION
  Report Type: Spontaneous
  Country: IT (occurrence: IT)
  Receive Date: 20220308
  Receipt Date: 20221122
  Transmission Date: 20230112
  Serious: Yes (Hospitalization, Other)
  Sender: FDA-Public Use
  Company Number: IT-AMGEN-ITASP2022027708

PATIENT
  Sex: Male

DRUGS (17)
  1. CINACALCET [Suspect]
     Active Substance: CINACALCET
     Indication: Hyperparathyroidism primary
     Dosage: 2.9 MILLIGRAM/KILOGRAM, ONCE A DAY (2.9 MILLIGRAM/KILOGRAM, QD)
     Route: 065
  2. CINACALCET [Suspect]
     Active Substance: CINACALCET
     Indication: Hypercalcaemia
     Dosage: 4.7 MILLIGRAM/KILOGRAM, ONCE A DAY (4.7 MILLIGRAM/KILOGRAM, QD)
     Route: 065
  3. CINACALCET [Suspect]
     Active Substance: CINACALCET
     Dosage: 4 MILLIGRAM/KILOGRAM, ONCE A DAY (4 MILLIGRAM/KILOGRAM, QD)
     Route: 065
  4. CINACALCET [Suspect]
     Active Substance: CINACALCET
     Dosage: 2.9 MILLIGRAM/KILOGRAM, ONCE A DAY (2.9 MILLIGRAM/KILOGRAM, QD)
     Route: 065
  5. CINACALCET [Suspect]
     Active Substance: CINACALCET
     Dosage: 115 MILLIGRAM/SQ. METER, ONCE A DAY (115 MILLIGRAM/SQ. METER, QD)
     Route: 048
     Dates: start: 2011
  6. CINACALCET [Suspect]
     Active Substance: CINACALCET
     Dosage: 3.5 MILLIGRAM/KILOGRAM, ONCE A DAY (3.5 MILLIGRAM/KILOGRAM, QD)
     Route: 065
  7. CINACALCET [Suspect]
     Active Substance: CINACALCET
     Dosage: 6.1 MILLIGRAM/KILOGRAM, ONCE A DAY (6.1 MILLIGRAM/KILOGRAM, QD)
     Route: 065
     Dates: start: 201212
  8. CINACALCET [Suspect]
     Active Substance: CINACALCET
     Dosage: 20 MILLIGRAM/SQ. METER, ONCE A DAY (20 MILLIGRAM/SQ. METER, QD)
     Route: 048
  9. CINACALCET [Suspect]
     Active Substance: CINACALCET
     Dosage: 2.7 MILLIGRAM/KILOGRAM, ONCE A DAY (2.7 MILLIGRAM/KILOGRAM, QD)
     Route: 065
  10. CINACALCET [Suspect]
     Active Substance: CINACALCET
     Dosage: 4.3 MILLIGRAM/KILOGRAM, ONCE A DAY (4.3 MILLIGRAM/KILOGRAM, QD)
     Route: 065
  11. CINACALCET [Suspect]
     Active Substance: CINACALCET
     Dosage: 6.5 MILLIGRAM/KILOGRAM, ONCE A DAY (6.5 MILLIGRAM/KILOGRAM, QD)
     Route: 065
     Dates: start: 2011
  12. CINACALCET [Suspect]
     Active Substance: CINACALCET
     Dosage: 3.2 MILLIGRAM/KILOGRAM, ONCE A DAY (3.2 MILLIGRAM/KILOGRAM, QD)
     Route: 065
  13. CINACALCET [Suspect]
     Active Substance: CINACALCET
     Dosage: 3.8 MILLIGRAM/KILOGRAM, ONCE A DAY (3.8 MILLIGRAM/KILOGRAM, QD)
     Route: 065
  14. CINACALCET [Suspect]
     Active Substance: CINACALCET
     Dosage: 20 MILLIGRAM/SQ. METER
     Route: 048
     Dates: start: 2011
  15. CINACALCET [Suspect]
     Active Substance: CINACALCET
     Dosage: 60 MILLIGRAM, ONCE A DAY (60 MG/DAY DIVIDED INTO 2 DOSES)
     Route: 048
  16. FUROSEMIDE [Concomitant]
     Active Substance: FUROSEMIDE
     Indication: Hypercalcaemia
     Dosage: UNK
     Route: 065
  17. CHOLECALCIFEROL [Concomitant]
     Active Substance: CHOLECALCIFEROL
     Indication: Product used for unknown indication
     Dosage: UNK
     Route: 065

REACTIONS (12)
  - Adhesion [Unknown]
  - Decreased appetite [Recovered/Resolved]
  - Gastrointestinal disorder [Unknown]
  - Growth retardation [Recovering/Resolving]
  - Hypocalcaemia [Unknown]
  - Hypoparathyroidism [Unknown]
  - Loss of personal independence in daily activities [Unknown]
  - Laryngeal nerve dysfunction [Recovered/Resolved]
  - Nausea [Recovered/Resolved]
  - Parathyroid hyperplasia [Unknown]
  - Vomiting [Recovered/Resolved]
  - Off label use [Unknown]
